FAERS Safety Report 17812764 (Version 3)
Quarter: 2020Q4

REPORT INFORMATION
  Report Type: Report from Study
  Country: US (occurrence: US)
  Receive Date: 20200521
  Receipt Date: 20201209
  Transmission Date: 20210113
  Serious: No
  Sender: FDA-Public Use
  Company Number: NVSC2020US139760

PATIENT
  Sex: Male

DRUGS (2)
  1. COSENTYX [Suspect]
     Active Substance: SECUKINUMAB
     Indication: PSORIASIS
  2. COSENTYX [Suspect]
     Active Substance: SECUKINUMAB
     Indication: PSORIASIS
     Dosage: 300 MG, (ONCE WEEKLY FOR 5WEEKS,THEN ONCE EVERY 4 WEEKS)
     Route: 058

REACTIONS (3)
  - Psoriasis [Unknown]
  - Ageusia [Unknown]
  - Weight decreased [Unknown]
